FAERS Safety Report 7770053-1 (Version None)
Quarter: 2011Q3

REPORT INFORMATION
  Report Type: 
  Country: None (occurrence: None)
  Receive Date: 20110922
  Receipt Date: 20100820
  Transmission Date: 20111222
  Serious: No
  Sender: FDA-Public Use
  Company Number: US-ASTRAZENECA-2010SE39362

PATIENT
  Sex: Female

DRUGS (2)
  1. CYMBALTA [Concomitant]
  2. SEROQUEL XR [Suspect]
     Route: 048
     Dates: start: 20100101

REACTIONS (2)
  - ROAD TRAFFIC ACCIDENT [None]
  - SOMNOLENCE [None]
